FAERS Safety Report 7511244-4 (Version None)
Quarter: 2011Q2

REPORT INFORMATION
  Report Type: 
  Country: None (occurrence: None)
  Receive Date: 20110531
  Receipt Date: 20110525
  Transmission Date: 20111010
  Serious: Yes (Death, Other)
  Sender: FDA-Public Use
  Company Number: PHFR2011GB01458

PATIENT
  Sex: Male

DRUGS (4)
  1. TEGRETOL [Suspect]
     Dosage: 200 MG, BID
  2. ACETAMINOPHEN AND CODEINE PHOSPHATE [Suspect]
     Dosage: UNK DF, UNK
  3. ACETAMINOPHEN WITH PROPOXYPHENE HCL TAB [Concomitant]
     Dosage: 325MG UNK
  4. TEGRETOL [Suspect]
     Dosage: 400 MG, BID

REACTIONS (7)
  - CEREBRAL HAEMORRHAGE [None]
  - LOSS OF CONSCIOUSNESS [None]
  - HYPERSENSITIVITY [None]
  - MALAISE [None]
  - POISONING [None]
  - INJURY [None]
  - DYSPNOEA [None]
